FAERS Safety Report 22280849 (Version 1)
Quarter: 2023Q2

REPORT INFORMATION
  Report Type: Report from Study
  Country: PR (occurrence: PR)
  Receive Date: 20230503
  Receipt Date: 20230503
  Transmission Date: 20230721
  Serious: Yes (Other)
  Sender: FDA-Public Use
  Company Number: PR-ABBVIE-4749618

PATIENT
  Sex: Male
  Weight: 74 kg

DRUGS (3)
  1. RINVOQ [Suspect]
     Active Substance: UPADACITINIB
     Indication: Dermatitis atopic
     Dosage: FORM STRENGTH: 15 MILLIGRAM
     Route: 048
     Dates: start: 20230227, end: 20230424
  2. Benazepril (Benazepril hydrochloride) [Concomitant]
     Indication: Product used for unknown indication
     Route: 048
     Dates: start: 2013
  3. ATORVASTATIN CALCIUM [Concomitant]
     Active Substance: ATORVASTATIN CALCIUM
     Indication: Product used for unknown indication
     Route: 048
     Dates: start: 202303

REACTIONS (8)
  - Hepatic enzyme increased [Unknown]
  - Peripheral swelling [Recovered/Resolved]
  - Dizziness [Not Recovered/Not Resolved]
  - Pain in extremity [Unknown]
  - Swelling face [Recovered/Resolved]
  - Malaise [Unknown]
  - Peripheral swelling [Recovering/Resolving]
  - Renal function test abnormal [Unknown]

NARRATIVE: CASE EVENT DATE: 20230410
